FAERS Safety Report 20998574 (Version 1)
Quarter: 2022Q2

REPORT INFORMATION
  Report Type: Other
  Country: US (occurrence: US)
  Receive Date: 20220623
  Receipt Date: 20220623
  Transmission Date: 20220720
  Serious: Yes (Death, Congenital Anomaly, Other)
  Sender: FDA-Public Use
  Company Number: US-Covis Pharma GmbH-2022COV01937

PATIENT

DRUGS (1)
  1. MAKENA [Suspect]
     Active Substance: HYDROXYPROGESTERONE CAPROATE
     Indication: Foetal exposure during pregnancy
     Route: 064
     Dates: start: 20220513, end: 20220520

REACTIONS (2)
  - Congenital anomaly [Not Recovered/Not Resolved]
  - Stillbirth [Fatal]

NARRATIVE: CASE EVENT DATE: 20220526
